FAERS Safety Report 21296668 (Version 1)
Quarter: 2022Q3

REPORT INFORMATION
  Report Type: Spontaneous
  Country: CA (occurrence: CA)
  Receive Date: 20220906
  Receipt Date: 20220906
  Transmission Date: 20221027
  Serious: Yes (Death)
  Sender: FDA-Public Use
  Company Number: None

PATIENT
  Age: 68 Year
  Sex: Male
  Weight: 89 kg

DRUGS (16)
  1. FLUOROURACIL [Suspect]
     Active Substance: FLUOROURACIL
     Indication: Gastric cancer stage IV
  2. ELOXATIN [Suspect]
     Active Substance: OXALIPLATIN
     Indication: Gastric cancer stage IV
     Dosage: INTRAVENOUS DRIP
     Route: 042
  3. ATORVASTATIN [Concomitant]
     Active Substance: ATORVASTATIN
     Route: 065
  4. FLUTICASONE [Concomitant]
     Active Substance: FLUTICASONE
     Dosage: SPRAY, METERED DOSE
  5. GLICLAZIDE [Concomitant]
     Active Substance: GLICLAZIDE
  6. GLYCOPYRROLATE [Concomitant]
     Active Substance: GLYCOPYRROLATE
  7. INSULIN NOS [Concomitant]
     Active Substance: INSULIN NOS
  8. LIDOCAINE [Concomitant]
     Active Substance: LIDOCAINE
     Dosage: TOPICAL
  9. LITHIUM [Concomitant]
     Active Substance: LITHIUM
  10. METFORMIN [Concomitant]
     Active Substance: METFORMIN HYDROCHLORIDE
  11. OLANZAPINE [Concomitant]
     Active Substance: OLANZAPINE
  12. PANTOPRAZOLE [Concomitant]
     Active Substance: PANTOPRAZOLE
     Dosage: POWDER FOR SOLUTION
     Route: 042
  13. PROCHLORPERAZINE [Concomitant]
     Active Substance: PROCHLORPERAZINE
  14. DULAGLUTIDE [Concomitant]
     Active Substance: DULAGLUTIDE
     Dosage: STRENGTH 1.5 MG
  15. VENLAFAXINE HYDROCHLORIDE [Concomitant]
     Active Substance: VENLAFAXINE HYDROCHLORIDE
  16. VITAMIN D [Concomitant]
     Active Substance: VITAMIN D NOS

REACTIONS (1)
  - End stage renal disease [Fatal]
